FAERS Safety Report 9919543 (Version 2)
Quarter: 2014Q1

REPORT INFORMATION
  Report Type: Spontaneous
  Country: US (occurrence: US)
  Receive Date: 20140224
  Receipt Date: 20140317
  Transmission Date: 20141002
  Serious: No
  Sender: FDA-Public Use
  Company Number: US-009507513-1402USA008089

PATIENT
  Age: 72 Year
  Sex: Female
  Weight: 83.9 kg

DRUGS (9)
  1. OXYTROL FOR WOMEN [Suspect]
     Indication: PRODUCT USED FOR UNKNOWN INDICATION
     Dosage: 1 DF, ONCE
     Route: 062
     Dates: start: 20140201, end: 20140201
  2. LOSARTAN POTASSIUM [Concomitant]
     Indication: BLOOD PRESSURE
     Dosage: UNK, UNKNOWN
  3. OMEPRAZOLE [Concomitant]
     Indication: GASTRITIS
     Dosage: UNK, UNKNOWN
  4. SUCRALFATE [Concomitant]
     Indication: DIVERTICULITIS
     Dosage: UNK, UNKNOWN
  5. ASPIRIN [Concomitant]
     Indication: PRODUCT USED FOR UNKNOWN INDICATION
     Dosage: UNK, UNKNOWN
  6. BENADRYL [Concomitant]
     Indication: PRODUCT USED FOR UNKNOWN INDICATION
     Dosage: UNK, UNKNOWN
  7. VITAMIN D (UNSPECIFIED) [Concomitant]
     Indication: PRODUCT USED FOR UNKNOWN INDICATION
     Dosage: UNK, UNKNOWN
  8. CYANOCOBALAMIN [Concomitant]
     Indication: PRODUCT USED FOR UNKNOWN INDICATION
     Dosage: UNK, UNKNOWN
  9. XANAX [Concomitant]
     Indication: PRODUCT USED FOR UNKNOWN INDICATION
     Dosage: UNK, PRN

REACTIONS (3)
  - Hot flush [Recovered/Resolved]
  - Dysgeusia [Recovered/Resolved]
  - Insomnia [Recovered/Resolved]
